FAERS Safety Report 20757837 (Version 1)
Quarter: 2022Q2

REPORT INFORMATION
  Report Type: Spontaneous
  Country: US (occurrence: None)
  Receive Date: 20220427
  Receipt Date: 20220427
  Transmission Date: 20220721
  Serious: Yes (Other)
  Sender: FDA-Public Use
  Company Number: None

PATIENT
  Age: 30 Year
  Sex: Female
  Weight: 79.2 kg

DRUGS (7)
  1. QULIPTA [Suspect]
     Active Substance: ATOGEPANT
     Indication: Migraine prophylaxis
     Dosage: FREQUENCY : DAILY;?
     Route: 048
     Dates: start: 20220218
  2. NEXPLANON [Concomitant]
     Active Substance: ETONOGESTREL
  3. TOPAMAX [Concomitant]
     Active Substance: TOPIRAMATE
  4. VENLAFAXINE [Concomitant]
     Active Substance: VENLAFAXINE HYDROCHLORIDE
  5. UBRELVY [Concomitant]
     Active Substance: UBROGEPANT
  6. PROCHLORPERAZINE [Concomitant]
     Active Substance: PROCHLORPERAZINE
  7. ALLEGRA [Concomitant]
     Active Substance: FEXOFENADINE HYDROCHLORIDE

REACTIONS (6)
  - Nausea [None]
  - Weight decreased [None]
  - Decreased appetite [None]
  - Decreased appetite [None]
  - Arthralgia [None]
  - Arthralgia [None]

NARRATIVE: CASE EVENT DATE: 20220225
